FAERS Safety Report 8765775 (Version 1)
Quarter: 2012Q4

REPORT INFORMATION
  Report Type: 
  Country: US (occurrence: US)
  Receive Date: 20120903
  Receipt Date: 20120903
  Transmission Date: 20130627
  Serious: No
  Sender: FDA-Public Use
  Company Number: US-PFIZER INC-2012214340

PATIENT
  Age: 41 Year
  Sex: Female

DRUGS (11)
  1. EFFEXOR XR [Suspect]
     Dosage: 150 mg, 1x/day
  2. METFORMIN [Concomitant]
     Dosage: 500 mg, 2x/day
  3. DIAMOX [Concomitant]
     Dosage: 750 mg, 2x/day
  4. LEVOXYL [Concomitant]
     Dosage: 137 mg, UNK
  5. FERROUS SULFATE [Concomitant]
     Dosage: UNK
  6. SINGULAIR [Concomitant]
     Dosage: 10 mg, UNK
  7. ESTER-C [Concomitant]
     Dosage: UNK
  8. FISH OIL [Concomitant]
     Dosage: UNK
  9. ASA [Concomitant]
     Dosage: UNK
  10. VITAMIN B6 [Concomitant]
     Dosage: 12 shots
  11. VITAMIN B12 [Concomitant]
     Dosage: 12 shots

REACTIONS (2)
  - Sedation [Unknown]
  - Activities of daily living impaired [Unknown]
